FAERS Safety Report 19239396 (Version 1)
Quarter: 2021Q2

REPORT INFORMATION
  Report Type: Spontaneous
  Country: DE (occurrence: DE)
  Receive Date: 20210510
  Receipt Date: 20210510
  Transmission Date: 20210717
  Serious: Yes (Other)
  Sender: FDA-Public Use
  Company Number: DE-TEVA-2021-DE-1908502

PATIENT
  Sex: Male

DRUGS (4)
  1. FOLFOX [Suspect]
     Active Substance: FLUOROURACIL\LEUCOVORIN CALCIUM\OXALIPLATIN
     Indication: COLON CANCER STAGE III
     Route: 065
     Dates: end: 2020
  2. DOCETAXEL. [Suspect]
     Active Substance: DOCETAXEL
     Indication: PROSTATE CANCER
     Route: 065
  3. ZOMETA [Suspect]
     Active Substance: ZOLEDRONIC ACID
     Indication: METASTASES TO SPINE
     Route: 065
  4. TRENANTONE [Suspect]
     Active Substance: LEUPROLIDE ACETATE
     Indication: PROSTATE CANCER
     Route: 065

REACTIONS (4)
  - Metastases to lymph nodes [Unknown]
  - Hypoaesthesia [Not Recovered/Not Resolved]
  - Paraesthesia [Not Recovered/Not Resolved]
  - Colon cancer stage III [Unknown]
